FAERS Safety Report 20632081 (Version 2)
Quarter: 2022Q1

REPORT INFORMATION
  Report Type: Spontaneous
  Country: GB (occurrence: GB)
  Receive Date: 20220324
  Receipt Date: 20220328
  Transmission Date: 20220423
  Serious: No
  Sender: FDA-Public Use
  Company Number: GB-PFIZER INC-202200413033

PATIENT
  Age: 55 Year
  Sex: Female

DRUGS (1)
  1. PALBOCICLIB [Suspect]
     Active Substance: PALBOCICLIB
     Dosage: UNK

REACTIONS (4)
  - Neoplasm progression [Unknown]
  - Abdominal pain upper [Unknown]
  - Blood alkaline phosphatase increased [Unknown]
  - Activated partial thromboplastin time prolonged [Unknown]
